FAERS Safety Report 8924418 (Version 1)
Quarter: 2012Q4

REPORT INFORMATION
  Report Type: Spontaneous
  Country: US (occurrence: None)
  Receive Date: 20121121
  Receipt Date: 20121121
  Transmission Date: 20130627
  Serious: Yes (Other)
  Sender: FDA-Public Use
  Company Number: None

PATIENT
  Age: 26 Year
  Sex: Female

DRUGS (3)
  1. PROMACTA [Suspect]
     Indication: IDIOPATHIC THROMBOCYTOPENIC PURPURA
     Dosage: Promacta 50 mg daily orally
     Route: 048
     Dates: start: 20121025, end: 20121106
  2. HYDROCODONE/APAP [Concomitant]
  3. DOCUSATE [Concomitant]

REACTIONS (1)
  - Thrombocytosis [None]
